FAERS Safety Report 7132963-8 (Version None)
Quarter: 2010Q4

REPORT INFORMATION
  Report Type: 
  Country: None (occurrence: None)
  Receive Date: 20101202
  Receipt Date: 20101122
  Transmission Date: 20110411
  Serious: Yes (Life-Threatening, Hospitalization, Disabling)
  Sender: FDA-Public Use
  Company Number: US-CELGENEUS-163-21880-10070997

PATIENT
  Sex: Female
  Weight: 78.088 kg

DRUGS (14)
  1. REVLIMID [Suspect]
     Indication: MYELODYSPLASTIC SYNDROME
     Route: 048
     Dates: start: 20090501
  2. REVLIMID [Suspect]
     Route: 048
     Dates: start: 20100527, end: 20100723
  3. ERGOCALCIFEROL [Concomitant]
     Dosage: 50,000 UNITS
     Route: 048
     Dates: start: 20090130
  4. ASPIRIN [Concomitant]
     Route: 048
     Dates: start: 20090519
  5. VITAMIN B-12 [Concomitant]
     Indication: VITAMIN B12 DEFICIENCY
     Route: 030
     Dates: start: 20090604
  6. TORADOL [Concomitant]
     Route: 048
     Dates: start: 20100401
  7. VALIUM [Concomitant]
     Route: 048
     Dates: start: 20090203
  8. MECLIZINE [Concomitant]
     Route: 048
     Dates: start: 20100203
  9. SYNTHROID [Concomitant]
     Route: 048
     Dates: start: 20100203
  10. CRESTOR [Concomitant]
     Route: 048
     Dates: start: 20100211
  11. ASTEPRO [Concomitant]
     Dosage: 1 SPRAY
     Route: 045
     Dates: start: 20100401
  12. CALTRATE [Concomitant]
     Dosage: 600
     Route: 065
  13. PROMETHAZINE [Concomitant]
     Route: 048
     Dates: start: 20090611
  14. HYZAAR [Concomitant]
     Route: 048
     Dates: start: 20100203

REACTIONS (10)
  - DIARRHOEA [None]
  - FATIGUE [None]
  - HAEMATOCRIT DECREASED [None]
  - HAEMOGLOBIN DECREASED [None]
  - HYPERHIDROSIS [None]
  - NATURAL KILLER-CELL LEUKAEMIA [None]
  - NAUSEA [None]
  - NEUTROPENIA [None]
  - PLATELET COUNT DECREASED [None]
  - WHITE BLOOD CELL COUNT DECREASED [None]
